FAERS Safety Report 7852756 (Version 7)
Quarter: 2013Q1

REPORT INFORMATION
  Report Type: Spontaneous
  Country: US (occurrence: US)
  Receive Date: 20110311
  Receipt Date: 20130313
  Transmission Date: 20140127
  Serious: Yes (Hospitalization, Other)
  Sender: FDA-Public Use
  Company Number: US-009507513-1103USA00937

PATIENT
  Sex: Female

DRUGS (5)
  1. FOSAMAX [Suspect]
     Indication: OSTEOPOROSIS
     Dosage: 70 MG, QW
     Route: 048
     Dates: start: 1995, end: 20080412
  2. FOSAMAX [Suspect]
     Indication: OSTEOPOROSIS
     Dosage: 70 MG, QW
     Route: 048
     Dates: start: 200804, end: 20090503
  3. ALENDRONATE SODIUM [Suspect]
     Indication: OSTEOPOROSIS
     Dosage: 70 MG, QW
     Route: 048
  4. MK-9278 [Concomitant]
     Dosage: UNK UNK, QD
     Dates: start: 1996
  5. CALCIUM (UNSPECIFIED) [Concomitant]
     Dates: start: 1996

REACTIONS (27)
  - Cholelithiasis [Unknown]
  - Fracture [Unknown]
  - Osteoarthritis [Unknown]
  - Knee arthroplasty [Unknown]
  - Spinal disorder [Unknown]
  - Osteoarthritis [Unknown]
  - Diverticulitis [Unknown]
  - Abscess [Unknown]
  - Cerebral infarction [Unknown]
  - Open reduction of fracture [Unknown]
  - Femur fracture [Recovered/Resolved]
  - Intervertebral disc degeneration [Unknown]
  - Fall [Unknown]
  - Diverticulum [Unknown]
  - Depression [Unknown]
  - Hypertension [Unknown]
  - Low turnover osteopathy [Unknown]
  - Scoliosis [Unknown]
  - Hypothyroidism [Unknown]
  - Anxiety [Unknown]
  - Hypercholesterolaemia [Unknown]
  - Insomnia [Unknown]
  - Upper respiratory tract infection [Unknown]
  - Visual impairment [Unknown]
  - Rotator cuff syndrome [Unknown]
  - Treatment noncompliance [Unknown]
  - Hypokalaemia [Unknown]
